FAERS Safety Report 13420667 (Version 1)
Quarter: 2017Q2

REPORT INFORMATION
  Report Type: Spontaneous
  Country: US (occurrence: US)
  Receive Date: 20170409
  Receipt Date: 20170409
  Transmission Date: 20170830
  Serious: No
  Sender: FDA-Public Use
  Company Number: US-TEVA-499078USA

PATIENT
  Age: 51 Year
  Sex: Female

DRUGS (6)
  1. DONNATAL [Concomitant]
     Active Substance: ATROPINE SULFATE\HYOSCYAMINE SULFATE\PHENOBARBITAL\SCOPOLAMINE HYDROBROMIDE
  2. COPAXONE [Suspect]
     Active Substance: GLATIRAMER ACETATE
     Indication: MULTIPLE SCLEROSIS
     Route: 058
  3. METHYLPREDNISOLON [Concomitant]
     Active Substance: METHYLPREDNISOLONE
  4. PREDNISONE. [Concomitant]
     Active Substance: PREDNISONE
  5. BONIVA [Concomitant]
     Active Substance: IBANDRONATE SODIUM
  6. PRAVACID [Concomitant]

REACTIONS (2)
  - Incorrect dose administered [Unknown]
  - Back pain [Unknown]

NARRATIVE: CASE EVENT DATE: 201407
